FAERS Safety Report 9469683 (Version 1)
Quarter: 2013Q3

REPORT INFORMATION
  Report Type: Spontaneous
  Country: NZ (occurrence: NZ)
  Receive Date: 20130822
  Receipt Date: 20130822
  Transmission Date: 20140515
  Serious: Yes (Hospitalization)
  Sender: FDA-Public Use
  Company Number: NZ-GE HEALTHCARE MEDICAL DIAGNOSTICS-OMPQ-PR-1308S-1011

PATIENT
  Age: 65 Year
  Sex: Male
  Weight: 110 kg

DRUGS (3)
  1. OMNIPAQUE [Suspect]
     Indication: EXPOSURE TO CHEMICAL POLLUTION
     Route: 042
     Dates: start: 20130724, end: 20130724
  2. OMNIPAQUE [Suspect]
     Indication: DIAGNOSTIC PROCEDURE
  3. ATORVASTATIN [Concomitant]

REACTIONS (4)
  - Eye pruritus [Recovered/Resolved]
  - Periorbital oedema [Recovered/Resolved]
  - Sneezing [Recovered/Resolved]
  - Urticaria [Recovered/Resolved]
